FAERS Safety Report 24763242 (Version 2)
Quarter: 2025Q1

REPORT INFORMATION
  Report Type: Spontaneous
  Country: JP (occurrence: JP)
  Receive Date: 20241222
  Receipt Date: 20250130
  Transmission Date: 20250409
  Serious: Yes (Other)
  Sender: MERCK
  Company Number: JP-MSD-2412JPN003144J

PATIENT
  Age: 69 Year
  Sex: Male

DRUGS (1)
  1. KEYTRUDA [Suspect]
     Active Substance: PEMBROLIZUMAB
     Indication: Squamous cell carcinoma of lung
     Route: 065
     Dates: start: 20180410

REACTIONS (1)
  - Pulmonary toxicity [Unknown]
